FAERS Safety Report 24338478 (Version 1)
Quarter: 2024Q3

REPORT INFORMATION
  Report Type: Report from Study
  Country: US (occurrence: US)
  Receive Date: 20240919
  Receipt Date: 20240919
  Transmission Date: 20241016
  Serious: Yes (Other)
  Sender: BAYER
  Company Number: US-BAYER-2024A130608

PATIENT
  Age: 40 Year
  Sex: Female
  Weight: 130.16 kg

DRUGS (26)
  1. ADEMPAS [Suspect]
     Active Substance: RIOCIGUAT
     Indication: Pulmonary arterial hypertension
     Dosage: 0.5 MG, TID
     Route: 048
  2. ZYRTEC [Concomitant]
     Active Substance: CETIRIZINE HYDROCHLORIDE
  3. CARVEDILOL [Concomitant]
     Active Substance: CARVEDILOL
  4. MAGNESIUM [Concomitant]
     Active Substance: MAGNESIUM
  5. MIRALAX [Concomitant]
     Active Substance: POLYETHYLENE GLYCOL 3350
  6. TYLENOL EXTRA STRENGTH [Concomitant]
     Active Substance: ACETAMINOPHEN
  7. HYDROXYZINE HYDROCHLORIDE [Concomitant]
     Active Substance: HYDROXYZINE HYDROCHLORIDE
  8. OXYCODONE HYDROCHLORIDE [Concomitant]
     Active Substance: OXYCODONE HYDROCHLORIDE
  9. PANTOPRAZOLE SODIUM [Concomitant]
     Active Substance: PANTOPRAZOLE SODIUM
  10. RECTIV [Concomitant]
     Active Substance: NITROGLYCERIN
  11. DULOXETINE HYDROCHLORIDE [Concomitant]
     Active Substance: DULOXETINE HYDROCHLORIDE
  12. LEVOTHYROXINE SODIUM [Concomitant]
     Active Substance: LEVOTHYROXINE SODIUM
  13. OPSUMIT [Concomitant]
     Active Substance: MACITENTAN
  14. VITAMIN D2 [Concomitant]
     Active Substance: ERGOCALCIFEROL
  15. HERBALS\TURMERIC [Concomitant]
     Active Substance: HERBALS\TURMERIC
  16. ZESTORETIC [Concomitant]
     Active Substance: HYDROCHLOROTHIAZIDE\LISINOPRIL
  17. IBUPROFEN [Concomitant]
     Active Substance: IBUPROFEN
  18. FAMOTIDINE [Concomitant]
     Active Substance: FAMOTIDINE
  19. TRAMADOL HCL [Concomitant]
     Active Substance: TRAMADOL HYDROCHLORIDE
  20. CHLORTHALIDONE [Concomitant]
     Active Substance: CHLORTHALIDONE
  21. HYDROCORTISONE [Concomitant]
     Active Substance: HYDROCORTISONE\HYDROCORTISONE ACETATE
  22. SPIRONOLACTONE [Concomitant]
     Active Substance: SPIRONOLACTONE
  23. CALCIUM CARBONATE [Concomitant]
     Active Substance: CALCIUM CARBONATE
  24. TORSEMIDE [Concomitant]
     Active Substance: TORSEMIDE
  25. LISINOPRIL [Concomitant]
     Active Substance: LISINOPRIL
  26. VITAMIN B COMPLEX [Concomitant]
     Active Substance: CYANOCOBALAMIN\DEXPANTHENOL\NIACINAMIDE\PYRIDOXINE HYDROCHLORIDE\RIBOFLAVIN 5^-PHOSPHATE SODIUM\THIA

REACTIONS (1)
  - Syncope [None]

NARRATIVE: CASE EVENT DATE: 20240902
